FAERS Safety Report 6420619-6 (Version None)
Quarter: 2009Q4

REPORT INFORMATION
  Report Type: 
  Country: None (occurrence: None)
  Receive Date: 20091027
  Receipt Date: 20091012
  Transmission Date: 20100525
  Serious: No
  Sender: FDA-Public Use
  Company Number: 900528435-AKO-4977AE

PATIENT
  Sex: Female

DRUGS (1)
  1. GENTAK [Suspect]
     Dosage: OPHTHALMIC
     Route: 047
     Dates: start: 20090926

REACTIONS (1)
  - APPLICATION SITE ERYTHEMA [None]
